FAERS Safety Report 19815207 (Version 2)
Quarter: 2021Q4

REPORT INFORMATION
  Report Type: Spontaneous
  Country: US (occurrence: US)
  Receive Date: 20210910
  Receipt Date: 20211020
  Transmission Date: 20220303
  Serious: No
  Sender: FDA-Public Use
  Company Number: US-PFIZER INC-202101050841

PATIENT
  Age: 4 Year
  Sex: Male
  Weight: 16.33 kg

DRUGS (1)
  1. GENOTROPIN [Suspect]
     Active Substance: SOMATROPIN
     Indication: Growth hormone deficiency
     Dosage: UNK, 1X/DAY, DAY (0.2 DOSE (UNITS NOT SPECIFIED), ONCE A DAY (INJECT ONCE A DAY IN THIGHS AND CHEEKS
     Dates: start: 201809

REACTIONS (2)
  - Off label use [Unknown]
  - Product administered at inappropriate site [Unknown]
